FAERS Safety Report 6527946-2 (Version None)
Quarter: 2010Q1

REPORT INFORMATION
  Report Type: 
  Country: None (occurrence: None)
  Receive Date: 20100105
  Receipt Date: 20100105
  Transmission Date: 20100710
  Serious: Yes (Life-Threatening)
  Sender: FDA-Public Use
  Company Number: None

PATIENT
  Age: 67 Year
  Sex: Male
  Weight: 86 kg

DRUGS (1)
  1. CARBOPLATIN [Suspect]
     Indication: METASTATIC NEOPLASM
     Dosage: 440 MG OTHER IV
     Route: 042
     Dates: start: 20090929, end: 20090929

REACTIONS (4)
  - ANGIOEDEMA [None]
  - CHEST DISCOMFORT [None]
  - COLD SWEAT [None]
  - OXYGEN SATURATION DECREASED [None]
